FAERS Safety Report 18715135 (Version 1)
Quarter: 2021Q1

REPORT INFORMATION
  Report Type: Spontaneous
  Country: US (occurrence: US)
  Receive Date: 20210108
  Receipt Date: 20210108
  Transmission Date: 20210419
  Serious: Yes (Other)
  Sender: FDA-Public Use
  Company Number: US-HIKMA PHARMACEUTICALS USA INC.-US-H14001-20-53167

PATIENT
  Age: 42 Year
  Sex: Female

DRUGS (6)
  1. DOXORUBICIN [Suspect]
     Active Substance: DOXORUBICIN
     Indication: SPINDLE CELL SARCOMA
  2. MESNA. [Suspect]
     Active Substance: MESNA
     Indication: METAPLASTIC BREAST CARCINOMA
     Route: 065
     Dates: start: 201803
  3. DOXORUBICIN [Suspect]
     Active Substance: DOXORUBICIN
     Indication: METAPLASTIC BREAST CARCINOMA
     Route: 065
     Dates: start: 201803
  4. IFOSFAMIDE. [Suspect]
     Active Substance: IFOSFAMIDE
     Indication: METAPLASTIC BREAST CARCINOMA
  5. MESNA. [Suspect]
     Active Substance: MESNA
     Indication: SPINDLE CELL SARCOMA
  6. IFOSFAMIDE. [Suspect]
     Active Substance: IFOSFAMIDE
     Indication: SPINDLE CELL SARCOMA
     Route: 065
     Dates: start: 201803

REACTIONS (1)
  - Febrile neutropenia [Unknown]

NARRATIVE: CASE EVENT DATE: 2018
